FAERS Safety Report 7383149-3 (Version None)
Quarter: 2011Q1

REPORT INFORMATION
  Report Type: 
  Country: None (occurrence: None)
  Receive Date: 20110325
  Receipt Date: 20110325
  Transmission Date: 20110831
  Serious: Yes (Hospitalization)
  Sender: FDA-Public Use
  Company Number: None

PATIENT
  Sex: Male
  Weight: 90.8 kg

DRUGS (1)
  1. ALBUTEROL [Suspect]
     Indication: STATUS ASTHMATICUS
     Dosage: 150 MG/HR CONTINUOUS AEROSOLIZED
     Dates: start: 20101030, end: 20101107

REACTIONS (1)
  - THERMAL BURN [None]
